FAERS Safety Report 10195633 (Version 1)
Quarter: 2014Q2

REPORT INFORMATION
  Report Type: Report from Study
  Country: IT (occurrence: IT)
  Receive Date: 20140527
  Receipt Date: 20140527
  Transmission Date: 20141212
  Serious: Yes (Hospitalization)
  Sender: FDA-Public Use
  Company Number: IT-ROCHE-1407542

PATIENT
  Age: 40 Year
  Sex: Female

DRUGS (9)
  1. BEVACIZUMAB [Suspect]
     Indication: COLORECTAL CANCER METASTATIC
     Dosage: DOSAGE FORM; 100 ML S.F , LATEST DOSE PRIOR TO SAE: 07/FEB/2014
     Route: 042
     Dates: start: 20140207, end: 20140520
  2. OXALIPLATIN [Suspect]
     Indication: COLORECTAL CANCER METASTATIC
     Dosage: DOSAGE FORM: 500 ML, 5%
     Route: 042
     Dates: start: 20140507, end: 20140520
  3. FLUOROURACIL [Suspect]
     Indication: COLORECTAL CANCER METASTATIC
     Dosage: LATEST DOSE PRIOR TO SEA: 09/MAY/2014
     Route: 042
     Dates: start: 20140507, end: 20140520
  4. PENTAZOLE [Concomitant]
     Route: 065
     Dates: start: 20140506
  5. TAPENTADOL [Concomitant]
     Route: 065
     Dates: start: 20140506, end: 20140520
  6. LAROXYL [Concomitant]
     Dosage: 3 DROPS
     Route: 065
     Dates: start: 20140506, end: 20140519
  7. PARACETAMOL [Concomitant]
     Route: 065
     Dates: start: 20140512
  8. OXICODONA [Concomitant]
     Route: 065
     Dates: start: 20140520
  9. LEVOFLOXACIN [Concomitant]
     Route: 065
     Dates: start: 20140512

REACTIONS (1)
  - General physical health deterioration [Not Recovered/Not Resolved]
